FAERS Safety Report 15984353 (Version 1)
Quarter: 2019Q1

REPORT INFORMATION
  Report Type: Spontaneous
  Country: AU (occurrence: AU)
  Receive Date: 20190220
  Receipt Date: 20190220
  Transmission Date: 20190418
  Serious: Yes (Other)
  Sender: FDA-Public Use
  Company Number: AU-AXELLIA-002245

PATIENT
  Age: 33 Year
  Sex: Male

DRUGS (2)
  1. VANCOMYCIN [Suspect]
     Active Substance: VANCOMYCIN
     Indication: RHODOCOCCUS INFECTION
  2. MEROPENEM. [Concomitant]
     Active Substance: MEROPENEM
     Indication: RHODOCOCCUS INFECTION
     Route: 042

REACTIONS (1)
  - Pancytopenia [Unknown]
